FAERS Safety Report 7000438-2 (Version None)
Quarter: 2010Q3

REPORT INFORMATION
  Report Type: 
  Country: None (occurrence: None)
  Receive Date: 20100920
  Receipt Date: 20100616
  Transmission Date: 20110219
  Serious: No
  Sender: FDA-Public Use
  Company Number: US-ASTRAZENECA-2010SE28106

PATIENT
  Age: 31 Year
  Sex: Male
  Weight: 81.6 kg

DRUGS (1)
  1. SEROQUEL [Suspect]
     Indication: BIPOLAR DISORDER
     Dosage: 50 MG BID-300MG HS
     Route: 048
     Dates: start: 20090101, end: 20090101

REACTIONS (2)
  - ANXIETY [None]
  - DRUG DOSE OMISSION [None]
